FAERS Safety Report 5331394-0 (Version None)
Quarter: 2007Q2

REPORT INFORMATION
  Report Type: 
  Country: None (occurrence: None)
  Receive Date: 20070522
  Receipt Date: 20070511
  Transmission Date: 20071010
  Serious: Yes (Hospitalization)
  Sender: FDA-Public Use
  Company Number: US-ROCHE-497461

PATIENT
  Age: 75 Year
  Sex: Female

DRUGS (3)
  1. XELODA [Suspect]
     Indication: METASTASES TO CENTRAL NERVOUS SYSTEM
     Route: 048
     Dates: end: 20070401
  2. XELODA [Suspect]
     Route: 048
     Dates: start: 20070401, end: 20070418
  3. LAPATINIB [Suspect]
     Indication: BREAST CANCER
     Route: 048
     Dates: start: 20070414, end: 20070419

REACTIONS (4)
  - FUNGAEMIA [None]
  - FUNGAL INFECTION [None]
  - MELAENA [None]
  - VOMITING [None]
